FAERS Safety Report 5353860-4 (Version None)
Quarter: 2007Q2

REPORT INFORMATION
  Report Type: 
  Country: None (occurrence: None)
  Receive Date: 20070608
  Receipt Date: 20070601
  Transmission Date: 20071010
  Serious: Yes (Other)
  Sender: FDA-Public Use
  Company Number: 2217-138

PATIENT
  Age: 53 Year
  Sex: Male

DRUGS (2)
  1. TRIAMCINOLONE [Suspect]
     Dosage: 40 MG ONCE
  2. LIDOCAINE [Concomitant]

REACTIONS (4)
  - DYSPNOEA [None]
  - MUSCULAR WEAKNESS [None]
  - POST PROCEDURAL COMPLICATION [None]
  - SPINAL CORD INFARCTION [None]
